FAERS Safety Report 6556467-6 (Version None)
Quarter: 2010Q1

REPORT INFORMATION
  Report Type: 
  Country: None (occurrence: None)
  Receive Date: 20100128
  Receipt Date: 20100125
  Transmission Date: 20100710
  Serious: Yes (Hospitalization)
  Sender: FDA-Public Use
  Company Number: US-MERCK-0911USA03151

PATIENT
  Age: 53 Year
  Sex: Male
  Weight: 150 kg

DRUGS (8)
  1. JANUVIA [Suspect]
     Indication: TYPE 2 DIABETES MELLITUS
     Route: 048
  2. SIMVASTATIN [Concomitant]
     Route: 048
  3. LISINOPRIL [Concomitant]
     Route: 048
  4. METFORMIN [Concomitant]
     Route: 065
  5. PIOGLITAZONE HYDROCHLORIDE [Concomitant]
     Route: 065
  6. GLUCOTROL XL [Concomitant]
     Route: 065
  7. PRAVACHOL [Concomitant]
     Route: 065
  8. HYZAAR [Concomitant]
     Route: 065

REACTIONS (4)
  - BLOOD GLUCOSE ABNORMAL [None]
  - DIABETES MELLITUS INADEQUATE CONTROL [None]
  - GALLBLADDER DISORDER [None]
  - PANCREATITIS [None]
